FAERS Safety Report 18322359 (Version 2)
Quarter: 2020Q4

REPORT INFORMATION
  Report Type: Spontaneous
  Country: BE (occurrence: BE)
  Receive Date: 20200928
  Receipt Date: 20201029
  Transmission Date: 20210113
  Serious: Yes (Death, Other)
  Sender: FDA-Public Use
  Company Number: BE-BAYER-2020-200193

PATIENT
  Age: 91 Year

DRUGS (1)
  1. XOFIGO [Suspect]
     Active Substance: RADIUM RA-223 DICHLORIDE
     Dosage: UNK
     Dates: start: 20200709, end: 20200709

REACTIONS (2)
  - Renal failure [None]
  - Infection [Fatal]

NARRATIVE: CASE EVENT DATE: 202009
